FAERS Safety Report 6417456-5 (Version None)
Quarter: 2009Q4

REPORT INFORMATION
  Report Type: 
  Country: None (occurrence: None)
  Receive Date: 20091027
  Receipt Date: 20091027
  Transmission Date: 20100525
  Serious: Yes (Disabling)
  Sender: FDA-Public Use
  Company Number: None

PATIENT
  Sex: Male
  Weight: 16.3295 kg

DRUGS (2)
  1. DAYTRANA [Suspect]
     Dosage: 10MG ONCE IN AM TRANSDERMAL
     Route: 062
     Dates: start: 20090925, end: 20090925
  2. DAYTRANA [Suspect]
     Dosage: 10MG ONCE IN AM TRANSDERMAL
     Route: 062
     Dates: start: 20090930, end: 20090930

REACTIONS (4)
  - DYSKINESIA [None]
  - OEDEMA MOUTH [None]
  - PARAESTHESIA ORAL [None]
  - SWOLLEN TONGUE [None]
